FAERS Safety Report 21164592 (Version 3)
Quarter: 2022Q3

REPORT INFORMATION
  Report Type: Other
  Country: CA (occurrence: None)
  Receive Date: 20220803
  Receipt Date: 20220822
  Transmission Date: 20221027
  Serious: Yes (Other)
  Sender: FDA-Public Use
  Company Number: CA-ROCHE-3133979

PATIENT
  Age: 62 Year
  Sex: Female

DRUGS (7)
  1. ACTEMRA [Suspect]
     Active Substance: TOCILIZUMAB
     Indication: Rheumatoid arthritis
     Route: 058
     Dates: start: 20220629
  2. ARAVA [Concomitant]
     Active Substance: LEFLUNOMIDE
  3. ATIVAN [Concomitant]
     Active Substance: LORAZEPAM
  4. PROLIA [Concomitant]
     Active Substance: DENOSUMAB
  5. TYLENOL [Concomitant]
     Active Substance: ACETAMINOPHEN
  6. ROSUVASTATIN [Concomitant]
     Active Substance: ROSUVASTATIN
  7. PREDNISONE [Concomitant]
     Active Substance: PREDNISONE

REACTIONS (11)
  - Ill-defined disorder [Not Recovered/Not Resolved]
  - Neutropenia [Not Recovered/Not Resolved]
  - Nasopharyngitis [Not Recovered/Not Resolved]
  - Hypertension [Unknown]
  - Skin atrophy [Unknown]
  - Blood blister [Unknown]
  - Limb injury [Unknown]
  - Skin fissures [Unknown]
  - Skin disorder [Unknown]
  - Impaired healing [Unknown]
  - Haemorrhage [Unknown]

NARRATIVE: CASE EVENT DATE: 20220701
